FAERS Safety Report 4656659-7 (Version None)
Quarter: 2005Q2

REPORT INFORMATION
  Report Type: 
  Country: None (occurrence: None)
  Receive Date: 20050506
  Receipt Date: 20050420
  Transmission Date: 20051028
  Serious: Yes (Disabling)
  Sender: FDA-Public Use
  Company Number: 2005-00956

PATIENT
  Age: 55 Year
  Sex: Female
  Weight: 70 kg

DRUGS (1)
  1. VELCADE [Suspect]
     Indication: MULTIPLE MYELOMA
     Dosage: 2.30 MG, 2/WEEK, INTRAVENOUS
     Route: 042
     Dates: start: 20050307, end: 20050405

REACTIONS (5)
  - DISEASE PROGRESSION [None]
  - DYSAESTHESIA [None]
  - NEUROPATHY PERIPHERAL [None]
  - QUADRIPLEGIA [None]
  - SENSORY LOSS [None]
